FAERS Safety Report 6134290-4 (Version None)
Quarter: 2009Q1

REPORT INFORMATION
  Report Type: 
  Country: None (occurrence: None)
  Receive Date: 20090325
  Receipt Date: 20090311
  Transmission Date: 20090719
  Serious: Yes (Hospitalization)
  Sender: FDA-Public Use
  Company Number: 430001M09KOR

PATIENT
  Age: 72 Year
  Sex: Female

DRUGS (4)
  1. NOVANTRONE [Suspect]
     Indication: B-CELL LYMPHOMA
     Dosage: 10 MG/M2, 1 IN 1 CYCLE, INTRAVENOUS (NOT OTHERWISE SPECIFIED)
     Route: 042
     Dates: start: 20080805, end: 20090223
  2. RITUXAN [Suspect]
     Indication: B-CELL LYMPHOMA
     Dosage: 375 MG/M2, 1 IN 1 CYCLE, INTRAVENOUS (NOT OTHERWISE SPECIFIED)
     Route: 042
     Dates: start: 20080805, end: 20090223
  3. DEXAMETHASONE [Suspect]
     Indication: B-CELL LYMPHOMA
     Dosage: 20 MG, 5 IN 1 CYCLE, ORAL
     Route: 048
     Dates: start: 20080805, end: 20090223
  4. FLUDARABINE PHOSPHATE [Suspect]
     Indication: B-CELL LYMPHOMA
     Dosage: 25 MG/M2, 3 IN 1 CYCLE, INTRAVENOUS (NOT OTHERWISE SPECIFIED)
     Route: 042
     Dates: start: 20080805, end: 20090223

REACTIONS (2)
  - CHILLS [None]
  - FEBRILE NEUTROPENIA [None]
